FAERS Safety Report 8225498-2 (Version None)
Quarter: 2012Q1

REPORT INFORMATION
  Report Type: 
  Country: None (occurrence: None)
  Receive Date: 20120321
  Receipt Date: 20120314
  Transmission Date: 20120608
  Serious: Yes (Other)
  Sender: FDA-Public Use
  Company Number: US-JNJFOC-20120307078

PATIENT
  Sex: Female
  Weight: 77.11 kg

DRUGS (9)
  1. ZYRTEC [Concomitant]
     Indication: MULTIPLE ALLERGIES
     Route: 048
     Dates: start: 20100101
  2. SPIRONOLACTONE [Concomitant]
     Route: 048
  3. FOLIC ACID [Concomitant]
     Indication: RHEUMATOID ARTHRITIS
     Route: 048
     Dates: start: 20060101
  4. LEVOTHYROXINE SODIUM [Concomitant]
     Indication: HYPOTHYROIDISM
     Route: 048
  5. TIZANIDINE HCL [Concomitant]
     Indication: MUSCLE RELAXANT THERAPY
     Route: 048
     Dates: start: 20070101
  6. ZETIA [Concomitant]
     Indication: BLOOD CHOLESTEROL
     Route: 048
     Dates: start: 20100101
  7. FLUTICASONE FUROATE [Concomitant]
     Indication: MULTIPLE ALLERGIES
     Dates: start: 20100101
  8. SIMPONI [Suspect]
     Indication: RHEUMATOID ARTHRITIS
     Route: 058
     Dates: start: 20110701
  9. METHOTREXATE [Concomitant]
     Indication: RHEUMATOID ARTHRITIS
     Route: 048
     Dates: start: 20060101

REACTIONS (7)
  - INJECTION SITE HAEMATOMA [None]
  - HERPES VIRUS INFECTION [None]
  - SINUSITIS [None]
  - CONTUSION [None]
  - DEVICE MALFUNCTION [None]
  - DRUG DOSE OMISSION [None]
  - EAR INFECTION [None]
